FAERS Safety Report 14607665 (Version 2)
Quarter: 2018Q2

REPORT INFORMATION
  Report Type: Spontaneous
  Country: JP (occurrence: JP)
  Receive Date: 20180307
  Receipt Date: 20180419
  Transmission Date: 20180711
  Serious: No
  Sender: FDA-Public Use
  Company Number: JP-GLAXOSMITHKLINE-JP2018JPN016896

PATIENT
  Age: 38 Year
  Sex: Male

DRUGS (6)
  1. PREDNISOLONE SODIUM SUCCINATE [Concomitant]
     Active Substance: PREDNISOLONE SODIUM SUCCINATE
     Dosage: 10 MG, BID
  2. BIO-THREE COMBINATION TABLETS [Concomitant]
     Dosage: UNK, TID
  3. ALLEGRA TABLETS [Concomitant]
     Dosage: UNK, BID
  4. MAGMITT TABLET [Concomitant]
     Dosage: UNK, TID
  5. MEPOLIZUMAB [Suspect]
     Active Substance: MEPOLIZUMAB
     Indication: ASTHMA
     Dosage: UNK
     Route: 058
     Dates: start: 20180125
  6. SINGULAIR TABLETS [Concomitant]
     Dosage: 10 MG, QD

REACTIONS (2)
  - Alanine aminotransferase increased [Unknown]
  - Aspartate aminotransferase increased [Unknown]
